FAERS Safety Report 25117674 (Version 1)
Quarter: 2025Q1

REPORT INFORMATION
  Report Type: Spontaneous
  Country: US (occurrence: US)
  Receive Date: 20250325
  Receipt Date: 20250325
  Transmission Date: 20250409
  Serious: No
  Sender: ROCHE
  Company Number: US-ROCHE-10000235834

PATIENT
  Sex: Male

DRUGS (1)
  1. XOLAIR [Suspect]
     Active Substance: OMALIZUMAB
     Indication: Arthropod bite
     Route: 065
     Dates: start: 20240724, end: 20240724

REACTIONS (5)
  - Fatigue [Unknown]
  - Bedridden [Unknown]
  - Off label use [Unknown]
  - Chest discomfort [Unknown]
  - Syncope [Unknown]
